FAERS Safety Report 9263521 (Version 1)
Quarter: 2013Q2

REPORT INFORMATION
  Report Type: Spontaneous
  Country: US (occurrence: US)
  Receive Date: 20130430
  Receipt Date: 20130430
  Transmission Date: 20140414
  Serious: No
  Sender: FDA-Public Use
  Company Number: US-ABBOTT-13P-163-1034130-00

PATIENT
  Age: 78 Year
  Sex: Female

DRUGS (3)
  1. CREON [Suspect]
     Indication: PANCREATIC CARCINOMA
     Dosage: 3 PILLS WITH EACH MEAL
     Dates: start: 201007, end: 20121228
  2. UNKNOWN THYROID MEDICATION [Concomitant]
     Indication: THYROID DISORDER
  3. UNKNOWN OTHER MEDICATIONS [Concomitant]
     Indication: ILL-DEFINED DISORDER

REACTIONS (4)
  - Muscle spasms [Recovering/Resolving]
  - Diarrhoea [Recovering/Resolving]
  - Nausea [Recovering/Resolving]
  - Post gastric surgery syndrome [Recovering/Resolving]
